FAERS Safety Report 5979481-8 (Version None)
Quarter: 2008Q4

REPORT INFORMATION
  Report Type: 
  Country: None (occurrence: None)
  Receive Date: 20081204
  Receipt Date: 20081127
  Transmission Date: 20090506
  Serious: Yes (Hospitalization)
  Sender: FDA-Public Use
  Company Number: BE-ELI_LILLY_AND_COMPANY-BE200811006184

PATIENT
  Sex: Female

DRUGS (3)
  1. BYETTA [Suspect]
     Indication: TYPE 2 DIABETES MELLITUS
     Dosage: 5 UG, 2/D
     Route: 058
  2. METFORMIN HCL [Concomitant]
     Dosage: UNK, UNKNOWN
     Route: 065
  3. NOVONORM [Concomitant]
     Dosage: UNK, UNKNOWN
     Route: 065

REACTIONS (2)
  - KETOACIDOSIS [None]
  - NAUSEA [None]
